FAERS Safety Report 7069878-X (Version None)
Quarter: 2010Q4

REPORT INFORMATION
  Report Type: 
  Country: None (occurrence: None)
  Receive Date: 20101028
  Receipt Date: 20100615
  Transmission Date: 20110411
  Serious: Yes (Other)
  Sender: FDA-Public Use
  Company Number: US-WYE-H15814310

PATIENT
  Age: 65 Year
  Sex: Male

DRUGS (14)
  1. CORDARONE [Suspect]
     Indication: ATRIAL FIBRILLATION
  2. SULFAMETHOXAZOLE AND TRIMETHOPRIM [Concomitant]
  3. METOPROLOL [Concomitant]
  4. NIFEDIPINE [Concomitant]
  5. TACROLIMUS [Interacting]
     Indication: IMMUNOSUPPRESSANT DRUG THERAPY
     Route: 048
  6. TACROLIMUS [Interacting]
     Route: 048
  7. TACROLIMUS [Interacting]
  8. INSULIN [Concomitant]
  9. LANSOPRAZOLE [Concomitant]
  10. BETAHISTINE [Concomitant]
  11. CALCIUM CARBONATE [Concomitant]
  12. ALFACALCIDOL [Concomitant]
  13. MYCOPHENOLATE MOFETIL [Concomitant]
  14. SIMVASTATIN [Concomitant]

REACTIONS (2)
  - DRUG INTERACTION [None]
  - ELECTROCARDIOGRAM QT PROLONGED [None]
